FAERS Safety Report 7345177-3 (Version None)
Quarter: 2011Q1

REPORT INFORMATION
  Report Type: 
  Country: None (occurrence: None)
  Receive Date: 20110310
  Receipt Date: 20110224
  Transmission Date: 20110831
  Serious: Yes (Other)
  Sender: FDA-Public Use
  Company Number: JP-ASTRAZENECA-2011SE12892

PATIENT
  Age: 53 Year
  Sex: Male

DRUGS (3)
  1. MEROPEN [Suspect]
     Indication: FEBRILE NEUTROPENIA
     Route: 042
     Dates: start: 20110209, end: 20110209
  2. MEROPEN [Suspect]
     Route: 042
     Dates: start: 20110210, end: 20110213
  3. MEROPEN [Suspect]
     Route: 042
     Dates: start: 20110214, end: 20110214

REACTIONS (5)
  - ATRIAL FIBRILLATION [None]
  - HEPATIC FUNCTION ABNORMAL [None]
  - PLATELET COUNT DECREASED [None]
  - ANAEMIA [None]
  - RENAL IMPAIRMENT [None]
